FAERS Safety Report 4647434-8 (Version None)
Quarter: 2005Q2

REPORT INFORMATION
  Report Type: 
  Country: None (occurrence: None)
  Receive Date: 20050426
  Receipt Date: 20050413
  Transmission Date: 20051028
  Serious: Yes (Other)
  Sender: FDA-Public Use
  Company Number: 2005059822

PATIENT
  Age: 59 Year
  Sex: Female
  Weight: 61.2356 kg

DRUGS (5)
  1. LIPITOR [Suspect]
     Indication: LIPIDS INCREASED
     Dosage: ORAL
     Route: 048
  2. ACCUPRIL [Suspect]
     Indication: HYPERTENSION
     Dosage: 20 MG (20 MG, 1 IN 1 D), ORAL
     Route: 048
  3. LEVOTHYROXINE SODIUM [Suspect]
     Indication: HYPOTHYROIDISM
     Dosage: ORAL
     Route: 048
  4. CONJUGATED ESTROGENS [Concomitant]
  5. VITAMINS (VITAMINS) [Concomitant]

REACTIONS (16)
  - AMNESIA [None]
  - APHASIA [None]
  - BLOOD CORTISOL INCREASED [None]
  - BLOOD TRIGLYCERIDES INCREASED [None]
  - DEAFNESS [None]
  - DIABETES MELLITUS [None]
  - DRUG DOSE OMISSION [None]
  - HYPERTENSION [None]
  - HYPOTHYROIDISM [None]
  - LIPIDS INCREASED [None]
  - NERVOUS SYSTEM DISORDER [None]
  - NIGHTMARE [None]
  - OSTEOPOROSIS [None]
  - RHABDOMYOLYSIS [None]
  - STRESS [None]
  - WEIGHT INCREASED [None]
